FAERS Safety Report 23293555 (Version 1)
Quarter: 2023Q4

REPORT INFORMATION
  Report Type: Spontaneous
  Country: IQ (occurrence: IQ)
  Receive Date: 20231213
  Receipt Date: 20231213
  Transmission Date: 20240110
  Serious: Yes (Other)
  Sender: FDA-Public Use
  Company Number: IQ-AFAXYS PHARMA, LLC-2023AFX00023

PATIENT

DRUGS (4)
  1. LIDOCAINE [Suspect]
     Active Substance: LIDOCAINE
     Indication: Tooth infection
  2. LIDOCAINE [Suspect]
     Active Substance: LIDOCAINE
     Indication: Dental care
  3. EPINEPHRINE [Concomitant]
     Active Substance: EPINEPHRINE
     Indication: Dental care
  4. EPINEPHRINE [Concomitant]
     Active Substance: EPINEPHRINE
     Indication: Tooth infection

REACTIONS (2)
  - Trigeminal neuralgia [Recovering/Resolving]
  - Toxicity to various agents [Recovering/Resolving]
